FAERS Safety Report 20037539 (Version 1)
Quarter: 2021Q4

REPORT INFORMATION
  Report Type: Spontaneous
  Country: DE (occurrence: DE)
  Receive Date: 20211105
  Receipt Date: 20211105
  Transmission Date: 20220303
  Serious: Yes (Hospitalization)
  Sender: FDA-Public Use
  Company Number: DE-ADRED-07002-01

PATIENT
  Age: 75 Year
  Sex: Male
  Weight: 88 kg

DRUGS (8)
  1. HYDROCHLOROTHIAZIDE\VALSARTAN [Suspect]
     Active Substance: HYDROCHLOROTHIAZIDE\VALSARTAN
     Indication: Product used for unknown indication
     Dosage: 12/80 MG, 1-0-0-0
  2. METRONIDAZOLE [Concomitant]
     Active Substance: METRONIDAZOLE
     Dosage: 400 MG, 1-1-1-0
  3. ASPIRIN [Concomitant]
     Active Substance: ASPIRIN
     Dosage: 100 MG, 0-0-1-0
  4. BISOPROLOL [Concomitant]
     Active Substance: BISOPROLOL
     Dosage: 5 MG, 1-0-0-0
  5. CEFUROXIM                          /00454601/ [Concomitant]
     Dosage: 500 MG, 1-0-1-0
  6. ALLOPURINOL [Concomitant]
     Active Substance: ALLOPURINOL
     Dosage: 300 MG, 0-1-0-0
  7. ATORVASTATIN [Concomitant]
     Active Substance: ATORVASTATIN
     Dosage: 80 MG, 0-0-1-0
  8. METAMIZOL                          /06276701/ [Concomitant]
     Dosage: 500 MG, 1-1-1-1

REACTIONS (5)
  - Abdominal pain [Unknown]
  - Nausea [Unknown]
  - Flatulence [Unknown]
  - General physical health deterioration [Unknown]
  - Eructation [Unknown]
